FAERS Safety Report 9056809 (Version 1)
Quarter: 2013Q1

REPORT INFORMATION
  Report Type: Spontaneous
  Country: US (occurrence: US)
  Receive Date: 20130201
  Receipt Date: 20130201
  Transmission Date: 20140127
  Serious: No
  Sender: FDA-Public Use
  Company Number: US-GALDERMA-US-GDP-11412594

PATIENT
  Sex: Female
  Weight: 61 kg

DRUGS (7)
  1. EPIDUO [Suspect]
     Indication: ACNE
     Route: 061
     Dates: start: 20090201, end: 201110
  2. EPIDUO [Suspect]
     Route: 061
     Dates: start: 201110, end: 201110
  3. EPIDUO [Suspect]
     Route: 061
     Dates: start: 20111102, end: 20111229
  4. NEUTROGENA MOISTURIZER [Concomitant]
     Indication: THERAPEUTIC SKIN CARE TOPICAL
     Route: 061
     Dates: start: 2008
  5. MAYBELLINE MINERAL MAKEUP [Concomitant]
     Indication: THERAPEUTIC SKIN CARE TOPICAL
     Route: 061
     Dates: start: 2006
  6. CLEAN AND CLEAR SENSITIVE FACE WASH [Concomitant]
     Indication: THERAPEUTIC SKIN CARE TOPICAL
     Route: 061
  7. REVLON EYE SHADOW [Concomitant]
     Indication: THERAPEUTIC SKIN CARE TOPICAL
     Route: 061

REACTIONS (6)
  - Eye oedema [Recovered/Resolved]
  - Eye pruritus [Recovered/Resolved]
  - Pruritus [Recovered/Resolved]
  - Dermatitis [Recovered/Resolved]
  - Erythema [Recovered/Resolved]
  - Product quality issue [None]
